FAERS Safety Report 8054594-8 (Version None)
Quarter: 2012Q1

REPORT INFORMATION
  Report Type: 
  Country: None (occurrence: None)
  Receive Date: 20120119
  Receipt Date: 20120109
  Transmission Date: 20120608
  Serious: No
  Sender: FDA-Public Use
  Company Number: US-BIOGENIDEC-2012BI001127

PATIENT
  Age: 58 Year
  Sex: Female

DRUGS (1)
  1. AVONEX [Suspect]
     Indication: MULTIPLE SCLEROSIS
     Route: 030
     Dates: start: 19980101

REACTIONS (8)
  - JOINT SWELLING [None]
  - LIMB INJURY [None]
  - GAIT DISTURBANCE [None]
  - FALL [None]
  - LIGAMENT SPRAIN [None]
  - BLOOD PRESSURE INCREASED [None]
  - PAIN [None]
  - JOINT INJURY [None]
